FAERS Safety Report 11735873 (Version 1)
Quarter: 2015Q4

REPORT INFORMATION
  Report Type: Spontaneous
  Country: US (occurrence: US)
  Receive Date: 20151110
  Receipt Date: 20151110
  Transmission Date: 20160304
  Serious: No
  Sender: FDA-Public Use
  Company Number: US-ELI_LILLY_AND_COMPANY-US201201003413

PATIENT
  Age: 36 Year
  Sex: Male

DRUGS (1)
  1. FORTEO [Suspect]
     Active Substance: TERIPARATIDE
     Indication: OSTEOPOROSIS
     Dosage: 20 UG, QD
     Route: 065
     Dates: start: 20111226

REACTIONS (10)
  - General physical health deterioration [Unknown]
  - Dysphonia [Unknown]
  - Nausea [Not Recovered/Not Resolved]
  - Abnormal behaviour [Unknown]
  - Fall [Unknown]
  - Vomiting [Not Recovered/Not Resolved]
  - Ankle fracture [Unknown]
  - Muscular weakness [Not Recovered/Not Resolved]
  - Spinal fracture [Unknown]
  - Hand fracture [Unknown]

NARRATIVE: CASE EVENT DATE: 20120110
